FAERS Safety Report 9314609 (Version 1)
Quarter: 2013Q2

REPORT INFORMATION
  Report Type: Report from Study
  Country: CA (occurrence: CA)
  Receive Date: 20130529
  Receipt Date: 20130529
  Transmission Date: 20140414
  Serious: Yes (Hospitalization, Other)
  Sender: FDA-Public Use
  Company Number: CA-JNJFOC-20130518085

PATIENT
  Age: 35 Year
  Sex: Female
  Weight: 74 kg

DRUGS (8)
  1. REMICADE [Suspect]
     Indication: CROHN^S DISEASE
     Route: 042
     Dates: start: 20110113
  2. METHOTREXATE [Concomitant]
     Route: 065
  3. SALOFALK [Concomitant]
     Dosage: DOSE: 8 PILLS
     Route: 065
  4. ZOPICLONE [Concomitant]
     Route: 065
  5. CIPRALEX [Concomitant]
     Route: 065
  6. PRISTIQ [Concomitant]
     Route: 065
  7. SEROQUEL [Concomitant]
     Route: 065
  8. CLONAZEPAM [Concomitant]
     Route: 065

REACTIONS (1)
  - Snoring [Unknown]
